FAERS Safety Report 25984755 (Version 1)
Quarter: 2025Q4

REPORT INFORMATION
  Report Type: Report from Study
  Country: CH (occurrence: CH)
  Receive Date: 20251031
  Receipt Date: 20251031
  Transmission Date: 20260118
  Serious: Yes (Hospitalization)
  Sender: ABBVIE
  Company Number: CH-ABBVIE-6521815

PATIENT
  Age: 72 Year
  Sex: Female

DRUGS (2)
  1. CARBIDOPA\LEVODOPA [Suspect]
     Active Substance: CARBIDOPA\LEVODOPA
     Indication: Parkinson^s disease
     Dosage: MD 11ML / CRD 3.5ML/H / ED 3.0 ML, LAST ADMIN DATE: 2025
     Route: 050
     Dates: start: 20250929
  2. CARBIDOPA\LEVODOPA [Suspect]
     Active Substance: CARBIDOPA\LEVODOPA
     Dosage: MD: 11ML / CRD: 4.0ML/H / ED: 2.0 ML
     Route: 050
     Dates: start: 202510

REACTIONS (5)
  - Tremor [Recovered/Resolved]
  - On and off phenomenon [Unknown]
  - Dyskinesia [Unknown]
  - Grimacing [Unknown]
  - Dysphonia [Unknown]

NARRATIVE: CASE EVENT DATE: 20250101
